FAERS Safety Report 8816377 (Version 1)
Quarter: 2012Q4

REPORT INFORMATION
  Report Type: Spontaneous
  Country: US (occurrence: None)
  Receive Date: 20120928
  Receipt Date: 20120928
  Transmission Date: 20130627
  Serious: Yes (Disabling)
  Sender: FDA-Public Use
  Company Number: None

PATIENT
  Age: 59 Year
  Sex: Female
  Weight: 74.84 kg

DRUGS (1)
  1. GABAPENTIN [Suspect]
     Indication: NERVE PAIN
     Dosage: 2 PILLS - STOPPED PILLS
     Route: 048
     Dates: start: 20080326, end: 20080327

REACTIONS (24)
  - Anxiety [None]
  - Sexual dysfunction [None]
  - Dyspnoea [None]
  - Hypersensitivity [None]
  - Tic [None]
  - Dysuria [None]
  - Oedema peripheral [None]
  - Pain in extremity [None]
  - Dyskinesia [None]
  - Dyskinesia [None]
  - Balance disorder [None]
  - Cough [None]
  - Emotional disorder [None]
  - Depression [None]
  - Memory impairment [None]
  - Wheezing [None]
  - Insomnia [None]
  - Tremor [None]
  - Dysphagia [None]
  - Restless legs syndrome [None]
  - Tremor [None]
  - Headache [None]
  - Feeling hot [None]
  - Crying [None]
